FAERS Safety Report 22615056 (Version 1)
Quarter: 2023Q2

REPORT INFORMATION
  Report Type: Spontaneous
  Country: ZA (occurrence: ZA)
  Receive Date: 20230619
  Receipt Date: 20230619
  Transmission Date: 20230722
  Serious: Yes (Other)
  Sender: FDA-Public Use
  Company Number: ZA-002147023-NVSC2022ZA007286

PATIENT
  Age: 79 Year
  Sex: Female

DRUGS (7)
  1. ACLASTA [Suspect]
     Active Substance: ZOLEDRONIC ACID
     Indication: Osteoporosis
     Dosage: UNK, Q12MO
     Route: 042
     Dates: start: 2014
  2. ACLASTA [Suspect]
     Active Substance: ZOLEDRONIC ACID
     Dosage: UNK, Q12MO
     Route: 042
     Dates: start: 2015
  3. ACLASTA [Suspect]
     Active Substance: ZOLEDRONIC ACID
     Dosage: UNK, Q12MO
     Route: 042
     Dates: start: 2016
  4. ACLASTA [Suspect]
     Active Substance: ZOLEDRONIC ACID
     Dosage: UNK, Q12MO
     Route: 042
     Dates: start: 2018
  5. ACLASTA [Suspect]
     Active Substance: ZOLEDRONIC ACID
     Dosage: UNK, Q12MO
     Route: 042
     Dates: start: 2020
  6. ACLASTA [Suspect]
     Active Substance: ZOLEDRONIC ACID
     Dosage: UNK, Q12MO
     Route: 042
     Dates: start: 2021
  7. ACLASTA [Suspect]
     Active Substance: ZOLEDRONIC ACID
     Dosage: UNK
     Route: 065
     Dates: end: 2022

REACTIONS (7)
  - Cardiac disorder [Recovering/Resolving]
  - Tooth disorder [Recovering/Resolving]
  - Hypotension [Recovering/Resolving]
  - Accident [Recovering/Resolving]
  - White blood cell count increased [Recovering/Resolving]
  - Allergy to animal [Recovering/Resolving]
  - Loss of consciousness [Recovering/Resolving]
